FAERS Safety Report 8091914-2 (Version None)
Quarter: 2012Q1

REPORT INFORMATION
  Report Type: 
  Country: None (occurrence: None)
  Receive Date: 20120129
  Receipt Date: 20111206
  Transmission Date: 20120608
  Serious: No
  Sender: FDA-Public Use
  Company Number: US-ABBOTT-11P-163-0881238-00

PATIENT
  Age: 58 Year
  Sex: Female

DRUGS (9)
  1. CLAMAIRA PATCH [Concomitant]
     Indication: HORMONE REPLACEMENT THERAPY
  2. VITAMIN D [Concomitant]
     Indication: VITAMIN SUPPLEMENTATION
  3. PRAVACHOL [Concomitant]
     Indication: BLOOD CHOLESTEROL
  4. METFORMIN HCL [Concomitant]
     Indication: DIABETES MELLITUS
  5. ASPIRIN [Concomitant]
     Indication: PRODUCT USED FOR UNKNOWN INDICATION
  6. TOPICAL MEDICATIONS [Concomitant]
     Indication: PSORIASIS
     Route: 061
  7. HUMIRA [Suspect]
     Indication: PSORIASIS
     Dates: start: 20110801
  8. ZOLOFT [Concomitant]
     Indication: POSTPARTUM DEPRESSION
  9. LESCOL [Concomitant]
     Indication: BLOOD CHOLESTEROL

REACTIONS (3)
  - GLOSSODYNIA [None]
  - TONGUE DISCOLOURATION [None]
  - TONGUE DISORDER [None]
